FAERS Safety Report 12995509 (Version 2)
Quarter: 2017Q1

REPORT INFORMATION
  Report Type: Other
  Country: FR (occurrence: FR)
  Receive Date: 20161202
  Receipt Date: 20170123
  Transmission Date: 20170428
  Serious: Yes (Hospitalization)
  Sender: FDA-Public Use
  Company Number: FR-SYMPLMED PHARMACEUTICALS-2016SYMPLMED000362

PATIENT

DRUGS (3)
  1. SALAZOPYRINE [Concomitant]
     Active Substance: SULFASALAZINE
     Indication: PRODUCT USED FOR UNKNOWN INDICATION
     Dosage: UNK
     Dates: start: 2014
  2. TEMERIT [Concomitant]
     Active Substance: NEBIVOLOL
     Indication: PRODUCT USED FOR UNKNOWN INDICATION
     Dosage: UNK
     Dates: start: 2014
  3. COVERSYL [Suspect]
     Active Substance: PERINDOPRIL
     Indication: PRODUCT USED FOR UNKNOWN INDICATION
     Dosage: 5 MG, QD
     Route: 048
     Dates: start: 20161101, end: 20161110

REACTIONS (3)
  - Dyspnoea [Recovered/Resolved]
  - Palatal oedema [Recovered/Resolved]
  - Lip oedema [Recovered/Resolved]

NARRATIVE: CASE EVENT DATE: 20161110
